FAERS Safety Report 7238574-8 (Version None)
Quarter: 2011Q1

REPORT INFORMATION
  Report Type: 
  Country: None (occurrence: None)
  Receive Date: 20110121
  Receipt Date: 20110114
  Transmission Date: 20110831
  Serious: Yes (Other)
  Sender: FDA-Public Use
  Company Number: US-JNJFOC-20100903708

PATIENT
  Sex: Male

DRUGS (1)
  1. LEVAQUIN [Suspect]
     Indication: PROSTATE INFECTION
     Route: 048

REACTIONS (9)
  - TENDONITIS [None]
  - JOINT SPRAIN [None]
  - JOINT INJURY [None]
  - LIGAMENT SPRAIN [None]
  - TENDON DISORDER [None]
  - TENDON RUPTURE [None]
  - ROTATOR CUFF SYNDROME [None]
  - ARTHROPATHY [None]
  - PERIARTHRITIS [None]
